FAERS Safety Report 11734584 (Version 1)
Quarter: 2015Q4

REPORT INFORMATION
  Report Type: Spontaneous
  Country: US (occurrence: None)
  Receive Date: 20151112
  Receipt Date: 20151112
  Transmission Date: 20160304
  Serious: Yes (Other)
  Sender: FDA-Public Use
  Company Number: None

PATIENT
  Age: 64 Year
  Sex: Female

DRUGS (1)
  1. LOSARTAN 50MG MACLEODS PHARMACEUTICALS [Suspect]
     Active Substance: LOSARTAN
     Indication: HYPERTENSION
     Dosage: 2-3 DAYS
     Route: 048

REACTIONS (3)
  - Gait disturbance [None]
  - Dizziness [None]
  - Product quality issue [None]

NARRATIVE: CASE EVENT DATE: 20151008
